FAERS Safety Report 20523346 (Version 1)
Quarter: 2022Q1

REPORT INFORMATION
  Report Type: Spontaneous
  Country: JP (occurrence: JP)
  Receive Date: 20220227
  Receipt Date: 20220227
  Transmission Date: 20220423
  Serious: Yes (Hospitalization)
  Sender: FDA-Public Use
  Company Number: JP-STRIDES ARCOLAB LIMITED-2022SP001697

PATIENT
  Age: 85 Year
  Sex: Female

DRUGS (4)
  1. TACROLIMUS [Suspect]
     Active Substance: TACROLIMUS
     Indication: Rheumatoid arthritis
     Dosage: 2 MILLIGRAM, PER DAY
     Route: 065
  2. METHOTREXATE [Suspect]
     Active Substance: METHOTREXATE
     Indication: Rheumatoid arthritis
     Dosage: 8 MILLIGRAM, PER WEEK
     Route: 065
  3. PREDNISOLONE [Suspect]
     Active Substance: PREDNISOLONE
     Indication: Cellulitis
     Dosage: UNK
     Route: 048
  4. PREDNISOLONE [Suspect]
     Active Substance: PREDNISOLONE
     Dosage: UNK, (SLOWLY TAPERED)
     Route: 048

REACTIONS (8)
  - Immune reconstitution inflammatory syndrome [Unknown]
  - Lymphoproliferative disorder [Unknown]
  - Withdrawal syndrome [Unknown]
  - Cutaneous tuberculosis [Unknown]
  - Cellulitis [Unknown]
  - Epstein-Barr virus infection [Unknown]
  - Staphylococcal infection [Unknown]
  - Off label use [Unknown]
